FAERS Safety Report 8729874 (Version 2)
Quarter: 2012Q4

REPORT INFORMATION
  Report Type: 
  Country: US (occurrence: US)
  Receive Date: 20120817
  Receipt Date: 20121004
  Transmission Date: 20130627
  Serious: Yes (Other)
  Sender: FDA-Public Use
  Company Number: US-GLAXOSMITHKLINE-A0989085A

PATIENT
  Age: 65 Year
  Sex: Male

DRUGS (2)
  1. VENTOLIN [Suspect]
     Indication: PRODUCT USED FOR UNKNOWN INDICATION
     Dosage: 2PUFF Six times per day
     Route: 055
     Dates: start: 2012
  2. CONCURRENT MEDICATIONS [Concomitant]

REACTIONS (2)
  - Asthma [Unknown]
  - Product quality issue [Unknown]
